FAERS Safety Report 9994098 (Version 2)
Quarter: 2014Q1

REPORT INFORMATION
  Report Type: Spontaneous
  Country: FR (occurrence: FR)
  Receive Date: 20140310
  Receipt Date: 20140310
  Transmission Date: 20141002
  Serious: Yes (Death, Hospitalization, Other)
  Sender: FDA-Public Use
  Company Number: FR-CELGENEUS-056-50794-13092731

PATIENT
  Age: 13 Year
  Sex: 0
  Weight: 60 kg

DRUGS (2)
  1. VIDAZA [Suspect]
     Indication: MYELODYSPLASTIC SYNDROME
     Route: 065
     Dates: start: 20130919
  2. VIDAZA [Suspect]
     Indication: OFF LABEL USE

REACTIONS (7)
  - Death [Fatal]
  - Bone marrow failure [Unknown]
  - Neutropenia [Unknown]
  - Device related infection [Unknown]
  - Cellulitis [Unknown]
  - Injection site pain [Unknown]
  - Myelodysplastic syndrome [Unknown]
